FAERS Safety Report 7083023-6 (Version None)
Quarter: 2010Q4

REPORT INFORMATION
  Report Type: 
  Country: None (occurrence: None)
  Receive Date: 20101104
  Receipt Date: 20100331
  Transmission Date: 20110411
  Serious: Yes (Hospitalization, Other)
  Sender: FDA-Public Use
  Company Number: US-BAYER-201015628NA

PATIENT
  Age: 42 Year
  Sex: Female
  Weight: 86 kg

DRUGS (2)
  1. YAZ [Suspect]
     Indication: PRODUCT USED FOR UNKNOWN INDICATION
     Route: 048
     Dates: start: 20061101, end: 20090818
  2. YASMIN [Suspect]
     Indication: CONTRACEPTION
     Route: 048
     Dates: start: 20030213, end: 20031117

REACTIONS (2)
  - CEREBRAL VENOUS THROMBOSIS [None]
  - INTRACRANIAL VENOUS SINUS THROMBOSIS [None]
